FAERS Safety Report 5593145-4 (Version None)
Quarter: 2008Q1

REPORT INFORMATION
  Report Type: 
  Country: None (occurrence: None)
  Receive Date: 20080114
  Receipt Date: 20080114
  Transmission Date: 20080703
  Serious: Yes (Other)
  Sender: FDA-Public Use
  Company Number: None

PATIENT
  Age: 51 Year
  Sex: Female
  Weight: 76.6579 kg

DRUGS (1)
  1. BUDEPRION XL   300   IMPAX -TEVA- [Suspect]
     Indication: DEPRESSION
     Dosage: 300 MG/1 TABLET DAILY PO (DURATION: ABOUT 6-9 MONTHS)
     Route: 048

REACTIONS (6)
  - ANXIETY [None]
  - CRYING [None]
  - DEPRESSION [None]
  - PARANOIA [None]
  - THERAPEUTIC RESPONSE UNEXPECTED WITH DRUG SUBSTITUTION [None]
  - THINKING ABNORMAL [None]
